FAERS Safety Report 8592252-1 (Version None)
Quarter: 2012Q3

REPORT INFORMATION
  Report Type: 
  Country: None (occurrence: None)
  Receive Date: 20120814
  Receipt Date: 20120802
  Transmission Date: 20120928
  Serious: Yes (Other)
  Sender: FDA-Public Use
  Company Number: GB-BAUSCH-BL-2012-000395

PATIENT

DRUGS (4)
  1. DEXAMETHASONE [Suspect]
     Indication: CHRONIC LYMPHOCYTIC LEUKAEMIA
     Dates: start: 20110602
  2. BENDAMUSTINE HYDROCHLORIDE [Suspect]
     Dates: start: 20110613, end: 20110614
  3. BENDAMUSTINE HYDROCHLORIDE [Suspect]
     Dates: start: 20110711
  4. BENDAMUSTINE HYDROCHLORIDE [Suspect]
     Indication: CHRONIC LYMPHOCYTIC LEUKAEMIA
     Dates: start: 20110809

REACTIONS (5)
  - CHILLS [None]
  - FLUSHING [None]
  - FEELING HOT [None]
  - INFECTION [None]
  - MALAISE [None]
